FAERS Safety Report 6014488-6 (Version None)
Quarter: 2008Q4

REPORT INFORMATION
  Report Type: 
  Country: None (occurrence: None)
  Receive Date: 20081219
  Receipt Date: 20080717
  Transmission Date: 20090506
  Serious: No
  Sender: FDA-Public Use
  Company Number: A0738195A

PATIENT
  Age: 64 Year
  Sex: Male

DRUGS (4)
  1. AVODART [Suspect]
     Indication: BENIGN PROSTATIC HYPERPLASIA
     Dosage: 1CAP PER DAY
     Route: 048
     Dates: start: 20070101
  2. CRESTOR [Concomitant]
  3. ZETIA [Concomitant]
  4. TOPROL-XL [Concomitant]

REACTIONS (2)
  - BREAST SWELLING [None]
  - BREAST TENDERNESS [None]
